FAERS Safety Report 24730346 (Version 1)
Quarter: 2024Q4

REPORT INFORMATION
  Report Type: Report from Study
  Country: US (occurrence: US)
  Receive Date: 20241213
  Receipt Date: 20241213
  Transmission Date: 20250114
  Serious: Yes (Hospitalization)
  Sender: RECORDATI
  Company Number: US-RECORDATI RARE DISEASES-2024009649

PATIENT

DRUGS (9)
  1. CYSTADANE [Suspect]
     Active Substance: BETAINE
     Indication: Vitamin B12 deficiency
     Dosage: 6 GRAM (6 SCOOPS), TID
     Route: 048
     Dates: end: 202411
  2. CYSTADANE [Suspect]
     Active Substance: BETAINE
     Dosage: 6 GRAM (6 SCOOPS), TID
     Route: 048
     Dates: start: 202411
  3. CLONIDINE HYDROCHLORIDE [Concomitant]
     Active Substance: CLONIDINE HYDROCHLORIDE
     Indication: Product used for unknown indication
     Dosage: 0.1 MG, BID, TABLET 0.1 MG
     Route: 048
     Dates: start: 20240612
  4. LEUCOVORIN CALCIUM [Concomitant]
     Active Substance: LEUCOVORIN CALCIUM
     Indication: Product used for unknown indication
     Dosage: 5 MG, QD
     Route: 048
     Dates: start: 20021201
  5. LEVOCARNITINE [Concomitant]
     Active Substance: LEVOCARNITINE
     Indication: Product used for unknown indication
     Dosage: 200 MG, BID
     Route: 048
     Dates: start: 20021201
  6. METHIONINE [Concomitant]
     Active Substance: METHIONINE
     Indication: Product used for unknown indication
     Dosage: 1/8 TSP, QD
     Route: 048
     Dates: start: 20021201
  7. METHYLCOBALAMIN [Concomitant]
     Active Substance: METHYLCOBALAMIN
     Indication: Product used for unknown indication
     Dosage: 1 MILLILITER, QD
     Route: 030
     Dates: start: 20121201
  8. VIMPAT [Concomitant]
     Active Substance: LACOSAMIDE
     Indication: Product used for unknown indication
     Dosage: 1AM AND 3PM, BID, TABLET 100 MG
     Route: 048
     Dates: start: 20240612
  9. VITAMIN D3 [Concomitant]
     Active Substance: CHOLECALCIFEROL
     Indication: Product used for unknown indication
     Dosage: 5 MILLILITER, QD
     Route: 048
     Dates: start: 20021201

REACTIONS (2)
  - Urinary tract infection [Recovered/Resolved]
  - Off label use [Recovered/Resolved]

NARRATIVE: CASE EVENT DATE: 20241101
